FAERS Safety Report 4871303-1 (Version None)
Quarter: 2005Q4

REPORT INFORMATION
  Report Type: 
  Country: None (occurrence: None)
  Receive Date: 20051229
  Receipt Date: 20051220
  Transmission Date: 20060501
  Serious: Yes (Other)
  Sender: FDA-Public Use
  Company Number: FEI2005-3346

PATIENT
  Age: 34 Year
  Sex: Female

DRUGS (3)
  1. INTRAUTERINE COPPER CONTRACEPTIVE [Suspect]
     Indication: CONTRACEPTION
     Dosage: INTRA-UTERINE
     Route: 015
     Dates: start: 20051220, end: 20051220
  2. NAPROSYN [Concomitant]
  3. FLEXERIL [Concomitant]

REACTIONS (2)
  - CONVULSION [None]
  - SYNCOPE VASOVAGAL [None]
